FAERS Safety Report 5318464-8 (Version None)
Quarter: 2007Q2

REPORT INFORMATION
  Report Type: 
  Country: None (occurrence: None)
  Receive Date: 20070501
  Receipt Date: 20070420
  Transmission Date: 20071010
  Serious: Yes (Other)
  Sender: FDA-Public Use
  Company Number: 2007SP007660

PATIENT
  Sex: Female

DRUGS (2)
  1. AERIUS (DESLORATADINE) (DESLORTADINE) [Suspect]
     Indication: HYPERSENSITIVITY
     Dosage: PO
     Route: 048
  2. ELTROXIN (CON) [Concomitant]

REACTIONS (8)
  - ABDOMINAL PAIN UPPER [None]
  - CHILLS [None]
  - DIZZINESS [None]
  - DYSPNOEA [None]
  - HEART RATE DECREASED [None]
  - PHARYNGEAL OEDEMA [None]
  - RASH GENERALISED [None]
  - SWOLLEN TONGUE [None]
